FAERS Safety Report 10176492 (Version 3)
Quarter: 2014Q2

REPORT INFORMATION
  Report Type: Spontaneous
  Country: BR (occurrence: BR)
  Receive Date: 20140516
  Receipt Date: 20140613
  Transmission Date: 20141212
  Serious: Yes (Death, Hospitalization, Other)
  Sender: FDA-Public Use
  Company Number: BR-SA-2014SA058649

PATIENT
  Age: 66 Year
  Sex: Female

DRUGS (6)
  1. TAXOTERE [Suspect]
     Indication: CHEMOTHERAPY
     Route: 065
     Dates: start: 20140328, end: 20140328
  2. TAXOTERE [Suspect]
     Indication: CHEMOTHERAPY
     Route: 065
     Dates: start: 20140423, end: 20140423
  3. PERTUZUMAB [Suspect]
     Indication: CHEMOTHERAPY
     Route: 065
     Dates: start: 20140328, end: 20140328
  4. PERTUZUMAB [Suspect]
     Indication: CHEMOTHERAPY
     Route: 065
     Dates: start: 20140423, end: 20140423
  5. TRASTUZUMAB [Suspect]
     Indication: CHEMOTHERAPY
     Route: 065
     Dates: start: 20140328, end: 20140328
  6. TRASTUZUMAB [Suspect]
     Indication: CHEMOTHERAPY
     Route: 065
     Dates: start: 20140423, end: 20140423

REACTIONS (9)
  - Subcutaneous emphysema [Not Recovered/Not Resolved]
  - Sepsis [Fatal]
  - Pneumonitis [Fatal]
  - Febrile neutropenia [Not Recovered/Not Resolved]
  - Hypotension [Not Recovered/Not Resolved]
  - Pyrexia [Not Recovered/Not Resolved]
  - Bacteraemia [Not Recovered/Not Resolved]
  - Acute respiratory failure [Not Recovered/Not Resolved]
  - Acute respiratory distress syndrome [Recovering/Resolving]
